FAERS Safety Report 9105258 (Version 1)
Quarter: 2013Q1

REPORT INFORMATION
  Report Type: Spontaneous
  Country: US (occurrence: US)
  Receive Date: 20130221
  Receipt Date: 20130221
  Transmission Date: 20140127
  Serious: Yes (Hospitalization, Disabling)
  Sender: FDA-Public Use
  Company Number: US-009507513-1301USA008953

PATIENT
  Sex: Male

DRUGS (8)
  1. RIBAVIRIN [Suspect]
     Dosage: UNK
     Route: 048
     Dates: start: 20120521
  2. VICTRELIS [Suspect]
     Indication: HEPATITIS C
     Dosage: 800 MG, TID
     Route: 048
     Dates: start: 20120521
  3. PEGASYS [Suspect]
     Dosage: UNK
     Dates: start: 20120521
  4. CITALOPRAM [Concomitant]
  5. METFORMIN [Concomitant]
  6. LEVOTHYROXINE SODIUM [Concomitant]
  7. BUPROPION HYDROCHLORIDE [Concomitant]
  8. VITAMINS (UNSPECIFIED) [Concomitant]

REACTIONS (4)
  - Syncope [Not Recovered/Not Resolved]
  - Hemiparesis [Not Recovered/Not Resolved]
  - Hypoaesthesia [Not Recovered/Not Resolved]
  - Vomiting [Not Recovered/Not Resolved]
